FAERS Safety Report 7571049-5 (Version None)
Quarter: 2011Q2

REPORT INFORMATION
  Report Type: 
  Country: None (occurrence: None)
  Receive Date: 20110624
  Receipt Date: 20110621
  Transmission Date: 20111010
  Serious: Yes (Death, Hospitalization)
  Sender: FDA-Public Use
  Company Number: IT-ROCHE-784495

PATIENT
  Sex: Male

DRUGS (2)
  1. CLONAZEPAM [Suspect]
     Dosage: AS NECESSARY
     Route: 048
     Dates: start: 20110417, end: 20110502
  2. SEROQUEL [Concomitant]
     Route: 048
     Dates: start: 20110401, end: 20110502

REACTIONS (1)
  - DYSPNOEA [None]
